FAERS Safety Report 11340541 (Version 2)
Quarter: 2015Q3

REPORT INFORMATION
  Report Type: Spontaneous
  Country: US (occurrence: US)
  Receive Date: 20150805
  Receipt Date: 20150806
  Transmission Date: 20151125
  Serious: Yes (Other)
  Sender: FDA-Public Use
  Company Number: US-ASTRAZENECA-2015SE75031

PATIENT
  Age: 63 Year
  Sex: Female
  Weight: 65.8 kg

DRUGS (4)
  1. SODIUM MEDICATIONS [Suspect]
     Active Substance: UNSPECIFIED INGREDIENT
     Route: 065
  2. PRILOSEC OTC [Suspect]
     Active Substance: OMEPRAZOLE MAGNESIUM
     Route: 048
     Dates: start: 2005
  3. NEXIUM [Suspect]
     Active Substance: ESOMEPRAZOLE MAGNESIUM
     Indication: GASTROOESOPHAGEAL REFLUX DISEASE
     Dosage: MG UNKNOWN
     Route: 048
     Dates: start: 2005
  4. PRILOSEC [Suspect]
     Active Substance: OMEPRAZOLE MAGNESIUM
     Indication: GASTROOESOPHAGEAL REFLUX DISEASE
     Route: 048
     Dates: start: 1996, end: 1999

REACTIONS (9)
  - Drug ineffective [Unknown]
  - Barrett^s oesophagus [Unknown]
  - Gastrooesophageal reflux disease [Unknown]
  - Cardiac disorder [Unknown]
  - Hypertension [Unknown]
  - Pain [Unknown]
  - Blood pressure abnormal [Unknown]
  - Drug dose omission [Unknown]
  - Coronary artery disease [Unknown]

NARRATIVE: CASE EVENT DATE: 1999
